FAERS Safety Report 20278164 (Version 1)
Quarter: 2022Q1

REPORT INFORMATION
  Report Type: Spontaneous
  Country: CN (occurrence: CN)
  Receive Date: 20220103
  Receipt Date: 20220103
  Transmission Date: 20220424
  Serious: Yes (Other)
  Sender: FDA-Public Use
  Company Number: None

PATIENT
  Age: 51 Year
  Sex: Male
  Weight: 70 kg

DRUGS (5)
  1. VICTOZA [Suspect]
     Active Substance: LIRAGLUTIDE
     Indication: Blood glucose decreased
     Dosage: 0.6 MG, QD
     Route: 058
     Dates: start: 20211215, end: 20211217
  2. REPAGLINIDE [Suspect]
     Active Substance: REPAGLINIDE
     Dosage: 1 MG, TID
     Route: 048
     Dates: start: 20211216, end: 20211217
  3. REPAGLINIDE [Suspect]
     Active Substance: REPAGLINIDE
     Dosage: 2 MG, TID
     Route: 048
     Dates: start: 20211213, end: 20211217
  4. REPAGLINIDE [Suspect]
     Active Substance: REPAGLINIDE
     Dosage: 1.5 MG BEFORE BREAKFAST AND DINNER, 1 MG PO BEFORE LUNCH
     Route: 048
     Dates: start: 20211211, end: 20211213
  5. REPAGLINIDE [Suspect]
     Active Substance: REPAGLINIDE
     Indication: Blood glucose decreased
     Dosage: 1 MG, TID
     Route: 048
     Dates: start: 20211209, end: 20211211

REACTIONS (4)
  - Nausea [Recovering/Resolving]
  - Vomiting [Recovering/Resolving]
  - Dizziness [Recovering/Resolving]
  - Hypoglycaemia [Recovering/Resolving]

NARRATIVE: CASE EVENT DATE: 20211217
